FAERS Safety Report 4895934-8 (Version None)
Quarter: 2005Q4

REPORT INFORMATION
  Report Type: 
  Country: None (occurrence: None)
  Receive Date: 20051220
  Receipt Date: 20050222
  Transmission Date: 20060501
  Serious: Yes (Other)
  Sender: FDA-Public Use
  Company Number: US116180

PATIENT
  Age: 40 Year
  Sex: Male

DRUGS (2)
  1. ENBREL [Suspect]
     Indication: PSORIASIS
     Dosage: 25 MG, 2 IN 1 WEEKS, SC; 50 MG, 2 IN 1 WEEKS
     Route: 058
     Dates: start: 20040701, end: 20050201
  2. ENBREL [Suspect]
     Indication: PSORIASIS
     Dosage: 25 MG, 2 IN 1 WEEKS, SC; 50 MG, 2 IN 1 WEEKS
     Route: 058
     Dates: start: 20041101

REACTIONS (2)
  - ABSCESS [None]
  - STAPHYLOCOCCAL INFECTION [None]
